FAERS Safety Report 5681444-7 (Version None)
Quarter: 2008Q1

REPORT INFORMATION
  Report Type: 
  Country: None (occurrence: None)
  Receive Date: 20080326
  Receipt Date: 20070206
  Transmission Date: 20080703
  Serious: No
  Sender: FDA-Public Use
  Company Number: US-BAYER-US-2007-003651

PATIENT
  Age: 53 Year
  Sex: Female
  Weight: 64 kg

DRUGS (1)
  1. MIRENA [Suspect]
     Indication: MENSTRUATION IRREGULAR
     Route: 015
     Dates: start: 20060201, end: 20060901

REACTIONS (3)
  - AMENORRHOEA [None]
  - BREAST TENDERNESS [None]
  - FIBROCYSTIC BREAST DISEASE [None]
